FAERS Safety Report 7812465-3 (Version None)
Quarter: 2011Q4

REPORT INFORMATION
  Report Type: 
  Country: None (occurrence: None)
  Receive Date: 20111013
  Receipt Date: 20111007
  Transmission Date: 20120403
  Serious: Yes (Hospitalization)
  Sender: FDA-Public Use
  Company Number: GR-MERCK-1110USA01278

PATIENT
  Age: 5 Year
  Sex: Female

DRUGS (5)
  1. DECADRON [Suspect]
     Indication: TUBERCULOSIS OF CENTRAL NERVOUS SYSTEM
     Route: 048
  2. DECADRON [Suspect]
     Route: 048
  3. STREPTOMYCIN [Concomitant]
     Route: 065
  4. PYRAZINAMIDE [Concomitant]
     Route: 065
  5. ISONIAZID [Concomitant]
     Route: 065

REACTIONS (2)
  - CNS VENTRICULITIS [None]
  - ASPERGILLOSIS [None]
